FAERS Safety Report 17002446 (Version 2)
Quarter: 2020Q1

REPORT INFORMATION
  Report Type: Spontaneous
  Country: US (occurrence: US)
  Receive Date: 20191107
  Receipt Date: 20200218
  Transmission Date: 20200409
  Serious: Yes (Other)
  Sender: FDA-Public Use
  Company Number: US-ASTRAZENECA-2019SF57152

PATIENT
  Age: 689 Month
  Sex: Male
  Weight: 87.1 kg

DRUGS (52)
  1. TRICOR [Concomitant]
     Active Substance: FENOFIBRATE
     Dates: start: 201203
  2. TRIAMCINOLONE [Concomitant]
     Active Substance: TRIAMCINOLONE
     Dates: start: 201402
  3. NITROFURANTOIN. [Concomitant]
     Active Substance: NITROFURANTOIN
     Dates: start: 201608
  4. TERBINAFINE HCL [Concomitant]
     Active Substance: TERBINAFINE HYDROCHLORIDE
     Dates: start: 201707
  5. PEPCID [Concomitant]
     Active Substance: FAMOTIDINE
  6. NEXIUM [Suspect]
     Active Substance: ESOMEPRAZOLE MAGNESIUM
     Indication: GASTROOESOPHAGEAL REFLUX DISEASE
     Route: 048
     Dates: start: 20120301, end: 20190409
  7. NEXIUM [Suspect]
     Active Substance: ESOMEPRAZOLE MAGNESIUM
     Indication: GASTROOESOPHAGEAL REFLUX DISEASE
     Route: 048
     Dates: start: 201203, end: 201501
  8. OMEPRAZOLE. [Suspect]
     Active Substance: OMEPRAZOLE
     Indication: GASTROOESOPHAGEAL REFLUX DISEASE
     Dosage: GENERIC
     Route: 065
     Dates: start: 20090407, end: 20090514
  9. OMEPRAZOLE. [Suspect]
     Active Substance: OMEPRAZOLE
     Indication: GASTROOESOPHAGEAL REFLUX DISEASE
     Dosage: GENERIC
     Route: 065
     Dates: start: 201501, end: 201502
  10. METOPROLOL. [Concomitant]
     Active Substance: METOPROLOL
     Dates: start: 201203
  11. AFLURIA NOS [Concomitant]
     Active Substance: INFLUENZA VIRUS VACCINE TRIVALENT TYPE A+B AFLURIA
     Dates: start: 201509
  12. CLOPIDOGREL [Concomitant]
     Active Substance: CLOPIDOGREL BISULFATE
     Dates: start: 201605, end: 201607
  13. NEXIUM [Suspect]
     Active Substance: ESOMEPRAZOLE MAGNESIUM
     Indication: GASTROOESOPHAGEAL REFLUX DISEASE
     Route: 048
     Dates: start: 20081124
  14. NEXIUM [Suspect]
     Active Substance: ESOMEPRAZOLE MAGNESIUM
     Indication: GASTROOESOPHAGEAL REFLUX DISEASE
     Dosage: GENERIC
     Route: 065
     Dates: start: 20120301, end: 20190409
  15. NEXIUM [Suspect]
     Active Substance: ESOMEPRAZOLE MAGNESIUM
     Indication: GASTROOESOPHAGEAL REFLUX DISEASE
     Route: 048
  16. LANSOPRAZOLE. [Suspect]
     Active Substance: LANSOPRAZOLE
     Indication: GASTROOESOPHAGEAL REFLUX DISEASE
     Route: 065
     Dates: start: 20120301, end: 20190409
  17. TAMSULOSIN [Concomitant]
     Active Substance: TAMSULOSIN
     Indication: UROLOGICAL EXAMINATION
     Dates: start: 201203, end: 201211
  18. CYMBALTA [Concomitant]
     Active Substance: DULOXETINE HYDROCHLORIDE
     Dates: start: 201206, end: 201311
  19. DULOXETINE. [Concomitant]
     Active Substance: DULOXETINE
     Dates: start: 201312, end: 2014
  20. LEVOFLOXACIN. [Concomitant]
     Active Substance: LEVOFLOXACIN
     Dates: start: 201411
  21. CLINDAMYCIN. [Concomitant]
     Active Substance: CLINDAMYCIN
     Dates: start: 201704
  22. WARFARIN [Concomitant]
     Active Substance: WARFARIN
     Dates: start: 201705
  23. KETOROLAC [Concomitant]
     Active Substance: KETOROLAC TROMETHAMINE
  24. NEXIUM [Suspect]
     Active Substance: ESOMEPRAZOLE MAGNESIUM
     Indication: GASTROOESOPHAGEAL REFLUX DISEASE
     Route: 048
     Dates: start: 201210, end: 201502
  25. OMEPRAZOLE. [Suspect]
     Active Substance: OMEPRAZOLE
     Indication: GASTROOESOPHAGEAL REFLUX DISEASE
     Dosage: GENERIC
     Route: 065
     Dates: start: 20120301, end: 20190409
  26. AMITRIPTYLINE [Concomitant]
     Active Substance: AMITRIPTYLINE
     Dates: start: 201203
  27. HYDROCODONE BITARTRATE AND ACETAMINOPHEN [Concomitant]
     Active Substance: ACETAMINOPHEN\HYDROCODONE BITARTRATE
     Dates: start: 201203
  28. CIPROFLOXACIN. [Concomitant]
     Active Substance: CIPROFLOXACIN
     Dates: start: 201212
  29. PANTOPRAZOLE [Concomitant]
     Active Substance: PANTOPRAZOLE
     Route: 048
     Dates: start: 20090404, end: 20090408
  30. CELEBREX [Concomitant]
     Active Substance: CELECOXIB
  31. AMLODIPINE [Concomitant]
     Active Substance: AMLODIPINE BESYLATE
     Dates: start: 201203
  32. GABAPENTIN. [Concomitant]
     Active Substance: GABAPENTIN
     Dates: start: 201203, end: 201810
  33. FINASTERIDE. [Concomitant]
     Active Substance: FINASTERIDE
     Dates: start: 201203, end: 201303
  34. DICLOFENAC [Concomitant]
     Active Substance: DICLOFENAC
     Dates: start: 201603, end: 201607
  35. ATORVASTATIN [Concomitant]
     Active Substance: ATORVASTATIN
     Dates: start: 201605, end: 201607
  36. ZANAFLEX [Concomitant]
     Active Substance: TIZANIDINE HYDROCHLORIDE
  37. NEXIUM [Suspect]
     Active Substance: ESOMEPRAZOLE MAGNESIUM
     Indication: GASTROOESOPHAGEAL REFLUX DISEASE
     Route: 048
     Dates: start: 20171026
  38. FERROUS SULFATE. [Concomitant]
     Active Substance: FERROUS SULFATE
     Dates: start: 201202, end: 201704
  39. METOPROLOL. [Concomitant]
     Active Substance: METOPROLOL
     Dates: start: 201210
  40. TIZANIDINE. [Concomitant]
     Active Substance: TIZANIDINE
     Dates: start: 201203, end: 201809
  41. METRONIDAZOLE. [Concomitant]
     Active Substance: METRONIDAZOLE
     Dates: start: 201411
  42. REGLAN [Concomitant]
     Active Substance: METOCLOPRAMIDE HYDROCHLORIDE
  43. NEXIUM [Suspect]
     Active Substance: ESOMEPRAZOLE MAGNESIUM
     Indication: GASTROOESOPHAGEAL REFLUX DISEASE
     Dosage: GENERIC
     Route: 065
     Dates: start: 201506
  44. OMEPRAZOLE. [Suspect]
     Active Substance: OMEPRAZOLE
     Indication: GASTROOESOPHAGEAL REFLUX DISEASE
     Dosage: GENERIC
     Route: 065
     Dates: start: 20090514, end: 20091112
  45. LANSOPRAZOLE. [Suspect]
     Active Substance: LANSOPRAZOLE
     Indication: GASTROOESOPHAGEAL REFLUX DISEASE
     Route: 065
     Dates: start: 201502, end: 201506
  46. MORPHINE [Concomitant]
     Active Substance: MORPHINE
     Dates: start: 201203, end: 201204
  47. AMOXICILLIN. [Concomitant]
     Active Substance: AMOXICILLIN
     Dates: start: 201210
  48. ASPIRIN. [Concomitant]
     Active Substance: ASPIRIN
     Indication: CEREBROVASCULAR ACCIDENT
     Dates: start: 2015
  49. METOPROLOL. [Concomitant]
     Active Substance: METOPROLOL
     Dates: start: 201306, end: 201903
  50. CLOPIDOGREL [Concomitant]
     Active Substance: CLOPIDOGREL BISULFATE
     Dates: start: 201901
  51. MUPIROCIN. [Concomitant]
     Active Substance: MUPIROCIN
     Dates: start: 201607
  52. PENICILLIN VK [Concomitant]
     Active Substance: PENICILLIN V POTASSIUM
     Dates: start: 201707

REACTIONS (2)
  - Gastric cancer [Not Recovered/Not Resolved]
  - Adenocarcinoma gastric [Unknown]

NARRATIVE: CASE EVENT DATE: 200810
